FAERS Safety Report 22174440 (Version 2)
Quarter: 2023Q2

REPORT INFORMATION
  Report Type: Spontaneous
  Country: US (occurrence: None)
  Receive Date: 20230405
  Receipt Date: 20230518
  Transmission Date: 20230722
  Serious: Yes (Hospitalization, Other)
  Sender: FDA-Public Use
  Company Number: US-Hikma Pharmaceuticals USA Inc.-US-H14001-23-00967

PATIENT
  Age: 10 Year
  Sex: Male
  Weight: 41.1 kg

DRUGS (7)
  1. METHOTREXATE [Suspect]
     Active Substance: METHOTREXATE
     Indication: Leukaemia
     Route: 042
     Dates: start: 20221215
  2. CYTARABINE [Suspect]
     Active Substance: CYTARABINE
     Indication: Leukaemia
     Route: 042
     Dates: start: 20220714
  3. RUXOLITINIB [Suspect]
     Active Substance: RUXOLITINIB
     Indication: Leukaemia
     Route: 048
     Dates: start: 20220714
  4. CYCLOPHOSPHAMIDE [Suspect]
     Active Substance: CYCLOPHOSPHAMIDE
     Indication: Leukaemia
     Route: 042
     Dates: start: 20220714
  5. THIOGUANINE [Suspect]
     Active Substance: THIOGUANINE
     Indication: Leukaemia
     Route: 048
     Dates: start: 20220203
  6. VINCRISTINE [Suspect]
     Active Substance: VINCRISTINE
     Indication: Leukaemia
     Route: 042
     Dates: start: 20220725
  7. CALASPARGASE PEGOL [Suspect]
     Active Substance: CALASPARGASE PEGOL
     Indication: Leukaemia
     Route: 042
     Dates: start: 20230216

REACTIONS (7)
  - Febrile neutropenia [Recovered/Resolved]
  - Mucosal inflammation [Unknown]
  - Enterovirus infection [Recovered/Resolved]
  - Rhinovirus infection [Recovered/Resolved]
  - Pyrexia [Recovered/Resolved]
  - Neutrophil count decreased [Recovering/Resolving]
  - Upper respiratory tract infection [Recovered/Resolved]

NARRATIVE: CASE EVENT DATE: 20230220
